FAERS Safety Report 24376072 (Version 1)
Quarter: 2024Q3

REPORT INFORMATION
  Report Type: Spontaneous
  Country: US (occurrence: None)
  Receive Date: 20240927
  Receipt Date: 20240927
  Transmission Date: 20241016
  Serious: Yes (Other)
  Sender: Public
  Company Number: None

PATIENT
  Age: 8 Year
  Sex: Female
  Weight: 28.3 kg

DRUGS (1)
  1. DUPIXENT [Suspect]
     Active Substance: DUPILUMAB
     Dosage: OTHER FREQUENCY : EVERY 28 DAYS;?
     Route: 058
     Dates: start: 20230423, end: 20240814

REACTIONS (2)
  - Papilloedema [None]
  - Optic disc haemorrhage [None]

NARRATIVE: CASE EVENT DATE: 20240905
